FAERS Safety Report 15557120 (Version 3)
Quarter: 2019Q1

REPORT INFORMATION
  Report Type: Spontaneous
  Country: DE (occurrence: DE)
  Receive Date: 20181026
  Receipt Date: 20190103
  Transmission Date: 20190417
  Serious: Yes (Death, Other)
  Sender: FDA-Public Use
  Company Number: DE-BRISTOL-MYERS SQUIBB COMPANY-BMS-2018-100759

PATIENT

DRUGS (1)
  1. OPDIVO [Suspect]
     Active Substance: NIVOLUMAB
     Indication: BRONCHIAL CARCINOMA
     Dosage: UNAVAILABLE
     Route: 065

REACTIONS (5)
  - Death [Fatal]
  - Endocarditis [Unknown]
  - C-reactive protein abnormal [Unknown]
  - Infection [Unknown]
  - Procalcitonin abnormal [Unknown]
